FAERS Safety Report 21358955 (Version 2)
Quarter: 2022Q3

REPORT INFORMATION
  Report Type: Spontaneous
  Country: CN (occurrence: None)
  Receive Date: 20220921
  Receipt Date: 20220929
  Transmission Date: 20221026
  Serious: Yes (Death)
  Sender: FDA-Public Use
  Company Number: CN-ROCHE-3183074

PATIENT
  Age: 51 Year
  Sex: Male
  Weight: 100 kg

DRUGS (3)
  1. AVASTIN [Suspect]
     Active Substance: BEVACIZUMAB
     Indication: Glioblastoma
     Dosage: 10MG/KG, ON 21 SEP 2018, 15 OCT 2018, 14 NOV 2018, 19 JAN 2019, 05 MAR 2019, 22 MAR 2019, 12 APR 201
     Route: 065
  2. TEMOZOLOMIDE [Concomitant]
     Active Substance: TEMOZOLOMIDE
     Indication: Glioblastoma
     Dosage: AUGUST 2018 TO JULY 2019, 11 CYCLES
  3. LOMUSTINE [Concomitant]
     Active Substance: LOMUSTINE
     Indication: Glioblastoma
     Dosage: ON 23 NOV 2019, 26 MAR 2020, 26 APR 2020
     Route: 048

REACTIONS (2)
  - Death [Fatal]
  - Off label use [Unknown]

NARRATIVE: CASE EVENT DATE: 20200601
